FAERS Safety Report 11516749 (Version 1)
Quarter: 2015Q3

REPORT INFORMATION
  Report Type: Spontaneous
  Country: US (occurrence: None)
  Receive Date: 20150916
  Receipt Date: 20150916
  Transmission Date: 20151125
  Serious: Yes (Death)
  Sender: FDA-Public Use
  Company Number: None

PATIENT
  Age: 33 Year
  Sex: Male

DRUGS (1)
  1. AVONEX [Suspect]
     Active Substance: INTERFERON BETA-1A
     Indication: MULTIPLE SCLEROSIS
     Dosage: 30 MCG  ONCE A WEEK  INTRAMUSCULARLY
     Route: 030
     Dates: start: 20150713, end: 20150731

REACTIONS (1)
  - Death [None]

NARRATIVE: CASE EVENT DATE: 20150801
